FAERS Safety Report 4632750-6 (Version None)
Quarter: 2005Q2

REPORT INFORMATION
  Report Type: 
  Country: None (occurrence: None)
  Receive Date: 20050408
  Receipt Date: 20050408
  Transmission Date: 20051028
  Serious: Yes (Death)
  Sender: FDA-Public Use
  Company Number: None

PATIENT
  Age: 53 Year
  Sex: Male
  Weight: 83.9154 kg

DRUGS (7)
  1. BEXTRA [Suspect]
     Indication: PAIN MANAGEMENT
     Dosage: 20MG   ONCE DAILY   ORAL
     Route: 048
  2. OXYCOTIN [Concomitant]
  3. NEURONTIN [Concomitant]
  4. AMITRIPTILIN [Concomitant]
  5. PAXIL [Concomitant]
  6. NARCO AND SOMA [Concomitant]
  7. OXYGEN [Concomitant]

REACTIONS (2)
  - FEELING ABNORMAL [None]
  - MYOCARDIAL INFARCTION [None]
